FAERS Safety Report 8287510-4 (Version None)
Quarter: 2012Q2

REPORT INFORMATION
  Report Type: 
  Country: None (occurrence: None)
  Receive Date: 20120416
  Receipt Date: 20120410
  Transmission Date: 20120825
  Serious: Yes (Life-Threatening, Hospitalization)
  Sender: FDA-Public Use
  Company Number: FR-ELI_LILLY_AND_COMPANY-FR201204002735

PATIENT
  Sex: Female

DRUGS (3)
  1. AVASTIN [Concomitant]
     Indication: OVARIAN EPITHELIAL CANCER
     Dosage: UNK
     Dates: start: 20120228, end: 20120228
  2. CARBOPLATIN [Concomitant]
     Indication: OVARIAN EPITHELIAL CANCER
     Dosage: 430 MG, UNK
     Route: 042
     Dates: start: 20120207, end: 20120228
  3. GEMZAR [Suspect]
     Indication: OVARIAN EPITHELIAL CANCER
     Dosage: 1360 MG, UNK
     Route: 042
     Dates: start: 20120207, end: 20120228

REACTIONS (1)
  - ANAPHYLACTIC SHOCK [None]
